FAERS Safety Report 4368721-7 (Version None)
Quarter: 2004Q2

REPORT INFORMATION
  Report Type: 
  Country: None (occurrence: None)
  Receive Date: 20040525
  Receipt Date: 20040513
  Transmission Date: 20050107
  Serious: Yes (Hospitalization)
  Sender: FDA-Public Use
  Company Number: 2004213809JP

PATIENT
  Age: 14 Year
  Sex: Female

DRUGS (1)
  1. GENOTROPIN [Suspect]
     Indication: HYPOPITUITARISM
     Dosage: 5.2 MG IN 6 DAYS, SUBCUTANEOUS
     Route: 058
     Dates: start: 20010701

REACTIONS (1)
  - LOSS OF CONSCIOUSNESS [None]
